FAERS Safety Report 5529343-5 (Version None)
Quarter: 2007Q4

REPORT INFORMATION
  Report Type: 
  Country: None (occurrence: None)
  Receive Date: 20071129
  Receipt Date: 20071122
  Transmission Date: 20080405
  Serious: Yes (Hospitalization)
  Sender: FDA-Public Use
  Company Number: PHRM2002FR02922

PATIENT
  Age: 67 Year
  Sex: Male
  Weight: 70 kg

DRUGS (4)
  1. LAMISIL [Suspect]
     Indication: FUNGAL INFECTION
     Route: 048
     Dates: start: 20020520, end: 20020527
  2. KENZEN [Concomitant]
  3. TENORDATE [Concomitant]
  4. PREDNISONE TAB [Concomitant]
     Dosage: 6 MG DAILY

REACTIONS (10)
  - ARTHRALGIA [None]
  - CHILLS [None]
  - CHROMATURIA [None]
  - FAECES DISCOLOURED [None]
  - GENERAL PHYSICAL HEALTH DETERIORATION [None]
  - HEPATITIS ACUTE [None]
  - JAUNDICE [None]
  - MYALGIA [None]
  - PANCREATIC ENZYMES INCREASED [None]
  - PYREXIA [None]
